FAERS Safety Report 4506630-0 (Version None)
Quarter: 2004Q4

REPORT INFORMATION
  Report Type: 
  Country: None (occurrence: None)
  Receive Date: 20041117
  Receipt Date: 20041105
  Transmission Date: 20050328
  Serious: Yes (Hospitalization, Other)
  Sender: FDA-Public Use
  Company Number: 2004088886

PATIENT
  Age: 72 Year
  Sex: Female
  Weight: 99.7913 kg

DRUGS (6)
  1. BEXTRA [Suspect]
     Indication: ILL-DEFINED DISORDER
     Dosage: 10 MG
     Dates: start: 20040101
  2. INSULIN GLARGINE (INSULIN GLARGINE) [Concomitant]
  3. PIOGLITAZONE HCL [Concomitant]
  4. CELECOXIB (CELECOXIB) [Concomitant]
  5. HYDROCHLOROTHIAZIDE [Concomitant]
  6. ASPIRIN [Concomitant]

REACTIONS (4)
  - AMNESIA [None]
  - HYPERTENSION [None]
  - NAUSEA [None]
  - STOMACH DISCOMFORT [None]
